FAERS Safety Report 7592521-8 (Version None)
Quarter: 2011Q3

REPORT INFORMATION
  Report Type: 
  Country: None (occurrence: None)
  Receive Date: 20110706
  Receipt Date: 20110623
  Transmission Date: 20111222
  Serious: Yes (Other)
  Sender: FDA-Public Use
  Company Number: JP-ELI_LILLY_AND_COMPANY-JP201106007015

PATIENT
  Age: 19 Year
  Sex: Male

DRUGS (1)
  1. ZYPREXA [Suspect]
     Dosage: UNK
     Route: 048
     Dates: start: 20100701, end: 20100701

REACTIONS (1)
  - THROMBOCYTOPENIA [None]
